FAERS Safety Report 8177154-7 (Version None)
Quarter: 2012Q1

REPORT INFORMATION
  Report Type: 
  Country: None (occurrence: None)
  Receive Date: 20120301
  Receipt Date: 20120228
  Transmission Date: 20120608
  Serious: Yes (Other)
  Sender: FDA-Public Use
  Company Number: GB-GLAXOSMITHKLINE-B0784342A

PATIENT
  Sex: Male

DRUGS (1)
  1. AVANDIA [Suspect]

REACTIONS (8)
  - ANHEDONIA [None]
  - DISABILITY [None]
  - EMOTIONAL DISTRESS [None]
  - AFFECTIVE DISORDER [None]
  - ANGINA PECTORIS [None]
  - IMPAIRED WORK ABILITY [None]
  - PAIN [None]
  - CARDIAC DISORDER [None]
